FAERS Safety Report 5603166-0 (Version None)
Quarter: 2008Q1

REPORT INFORMATION
  Report Type: 
  Country: None (occurrence: None)
  Receive Date: 20080125
  Receipt Date: 20080114
  Transmission Date: 20080703
  Serious: Yes (Hospitalization)
  Sender: FDA-Public Use
  Company Number: US-PFIZER INC-2008003795

PATIENT
  Age: 69 Year
  Sex: Female
  Weight: 92 kg

DRUGS (15)
  1. AROMASIN [Suspect]
     Indication: BREAST CANCER
     Route: 048
  2. ACCUPRIL [Concomitant]
     Dosage: DAILY DOSE:20MG
  3. COREG [Concomitant]
     Dosage: DAILY DOSE:12.5MG
  4. GLUCOTROL XL [Concomitant]
     Dosage: DAILY DOSE:10MG
  5. IMDUR [Concomitant]
     Dosage: DAILY DOSE:30MG
  6. LANTUS [Concomitant]
     Dosage: DAILY DOSE:20MG
  7. LEXAPRO [Concomitant]
     Dosage: DAILY DOSE:10MG
  8. LIPITOR [Concomitant]
     Dosage: DAILY DOSE:40MG
  9. LORTAB [Concomitant]
     Dosage: DAILY DOSE:7.5MG
  10. RESTORIL [Concomitant]
     Dosage: DAILY DOSE:50MG
     Route: 048
  11. ACETAMINOPHEN [Concomitant]
     Dosage: FREQ:650 EVERY 4 HOURS, AS REQUIRED
  12. VANCOMYCIN [Concomitant]
     Dosage: DAILY DOSE:125
     Route: 048
  13. ZETIA [Concomitant]
     Dosage: DAILY DOSE:10MG
  14. MAGNESIUM OXIDE [Concomitant]
     Dosage: DAILY DOSE:400MG
  15. VITAMIN CAP [Concomitant]

REACTIONS (1)
  - DEEP VEIN THROMBOSIS [None]
